FAERS Safety Report 10684977 (Version 1)
Quarter: 2014Q4

REPORT INFORMATION
  Report Type: Spontaneous
  Country: US (occurrence: None)
  Receive Date: 20141230
  Receipt Date: 20141230
  Transmission Date: 20150529
  Serious: No
  Sender: FDA-Public Use
  Company Number: None

PATIENT
  Age: 60 Year
  Sex: Female
  Weight: 47.63 kg

DRUGS (1)
  1. PAROXETINE 10 MG AUROBINDO AUROLIFE [Suspect]
     Active Substance: PAROXETINE HYDROCHLORIDE
     Indication: DEPRESSION
     Dosage: ON  QD

REACTIONS (1)
  - Alopecia [None]

NARRATIVE: CASE EVENT DATE: 20141001
